FAERS Safety Report 11129511 (Version 2)
Quarter: 2015Q3

REPORT INFORMATION
  Report Type: Spontaneous
  Country: US (occurrence: US)
  Receive Date: 20150521
  Receipt Date: 20150730
  Transmission Date: 20151125
  Serious: Yes (Death)
  Sender: FDA-Public Use
  Company Number: US-LPDUSPRD-20150357

PATIENT
  Age: 53 Year
  Sex: Female

DRUGS (17)
  1. HYDRALAZINE [Concomitant]
     Active Substance: HYDRALAZINE HYDROCHLORIDE
     Dosage: DOSE NOT PROVIDED
  2. COMBISET 180NRE OPTIFLUX DIALYSER [Concomitant]
  3. CARVEDILOL. [Concomitant]
     Active Substance: CARVEDILOL
     Dosage: DOSE NOT PROVIDED
  4. VENOFER [Suspect]
     Active Substance: IRON SUCROSE
     Dosage: 100 MG. 3 X A WEEK
     Route: 042
     Dates: start: 20150401
  5. NORMAL SALINE [Concomitant]
     Active Substance: SODIUM CHLORIDE
  6. ZOLOFT [Concomitant]
     Active Substance: SERTRALINE HYDROCHLORIDE
     Dosage: DOSE NOT PROVIDED
  7. WARFARIN [Concomitant]
     Active Substance: WARFARIN
     Dosage: DOSE NOT PROVIDED
  8. CONCENTRATES [Concomitant]
  9. LORTAB [Concomitant]
     Active Substance: ACETAMINOPHEN\HYDROCODONE BITARTRATE
     Dosage: DOSE NOT PROVIDED
  10. BENADRYL [Concomitant]
     Active Substance: DIPHENHYDRAMINE HYDROCHLORIDE
     Dosage: DOSE NOT PROVIDED
  11. PRAVASTATIN [Concomitant]
     Active Substance: PRAVASTATIN\PRAVASTATIN SODIUM
     Dosage: DOSE NOT PROVIDED
  12. NEXIUM [Concomitant]
     Active Substance: ESOMEPRAZOLE MAGNESIUM
     Dosage: DOSE NOT PROVIDED
  13. POTASSIUM CHLORIDE. [Concomitant]
     Active Substance: POTASSIUM CHLORIDE
     Dosage: DOSE NOT PROVIDED
  14. ASPIRIN. [Concomitant]
     Active Substance: ASPIRIN
     Dosage: DOSE NOT PROVIDED
  15. LASIX [Concomitant]
     Active Substance: FUROSEMIDE
     Dosage: DOSE NOT PROVIDED
  16. MIRALAX [Concomitant]
     Active Substance: POLYETHYLENE GLYCOL 3350
     Dosage: DOSE NOT PROVIDED
  17. AMIODARONE [Concomitant]
     Active Substance: AMIODARONE
     Dosage: DOSE NOT PROVIDED

REACTIONS (3)
  - Cardiac arrest [Fatal]
  - Arrhythmia [Fatal]
  - Acute respiratory failure [Fatal]

NARRATIVE: CASE EVENT DATE: 20150417
